FAERS Safety Report 6132689-3 (Version None)
Quarter: 2009Q1

REPORT INFORMATION
  Report Type: 
  Country: None (occurrence: None)
  Receive Date: 20090326
  Receipt Date: 20090318
  Transmission Date: 20090719
  Serious: Yes (Other)
  Sender: FDA-Public Use
  Company Number: US-RANBAXY-2009US-22766

PATIENT

DRUGS (3)
  1. LORATADINE AND PSEUDOEPHEDRINE SULFATE [Suspect]
     Indication: SINUSITIS
     Dosage: 240 MG, BID
     Route: 048
     Dates: start: 20090309, end: 20090311
  2. MUCINEX [Suspect]
     Indication: SINUSITIS
  3. AMOXICILLIN [Suspect]
     Indication: SINUSITIS
     Dosage: UNK
     Route: 048

REACTIONS (2)
  - EAR DISCOMFORT [None]
  - PALPITATIONS [None]
